FAERS Safety Report 26149792 (Version 1)
Quarter: 2025Q4

REPORT INFORMATION
  Report Type: Spontaneous
  Country: US (occurrence: None)
  Receive Date: 20251211
  Receipt Date: 20251211
  Transmission Date: 20260117
  Serious: Yes (Other)
  Sender: FDA-CTU
  Company Number: None

PATIENT
  Sex: Male

DRUGS (11)
  1. LENALIDOMIDE [Suspect]
     Active Substance: LENALIDOMIDE
     Indication: Plasma cell myeloma
     Dosage: : TAKE 1 CAPSULE BY MOUTH DAILY
     Route: 048
     Dates: start: 20250725
  2. ACYCLOVIR [Concomitant]
     Active Substance: ACYCLOVIR
  3. AMLODIPINE TAB5MG [Concomitant]
  4. AMOXICILLIN [Concomitant]
     Active Substance: AMOXICILLIN
  5. ASPIRIN CHLD CHW 81 MG [Concomitant]
  6. ATORVASTATIN [Concomitant]
     Active Substance: ATORVASTATIN
  7. CALCIUM 500 TAB +D [Concomitant]
  8. CALCIUM CITR TAB 200MG [Concomitant]
  9. CHOLESTYRAM POW 4GM [Concomitant]
  10. D2000 ULTRA STRENGTH [Concomitant]
  11. DICLOFENAC [Concomitant]
     Active Substance: DICLOFENAC

REACTIONS (2)
  - Intentional dose omission [None]
  - Skin neoplasm excision [None]
